FAERS Safety Report 16021164 (Version 1)
Quarter: 2019Q1

REPORT INFORMATION
  Report Type: Spontaneous
  Country: US (occurrence: US)
  Receive Date: 20190228
  Receipt Date: 20190228
  Transmission Date: 20190418
  Serious: Yes (Other)
  Sender: FDA-Public Use
  Company Number: None

PATIENT
  Age: 76 Year
  Sex: Male
  Weight: 74.25 kg

DRUGS (18)
  1. CYCLOPHOSPHAMIDE. [Suspect]
     Active Substance: CYCLOPHOSPHAMIDE
     Indication: PLASMA CELL MYELOMA
     Dosage: ?          OTHER FREQUENCY:DAY 1, 8, 15;?
     Route: 048
     Dates: start: 20190205
  2. ATORVASTATIN CALCIUM. [Concomitant]
     Active Substance: ATORVASTATIN CALCIUM
  3. ZOLPIDEM TARTRATE. [Concomitant]
     Active Substance: ZOLPIDEM TARTRATE
  4. ATIVAN [Concomitant]
     Active Substance: LORAZEPAM
  5. VITAMIN D3 [Concomitant]
     Active Substance: CHOLECALCIFEROL
  6. GABAPENTIN. [Concomitant]
     Active Substance: GABAPENTIN
  7. DICLOFENAC POTASSIUM. [Concomitant]
     Active Substance: DICLOFENAC POTASSIUM
  8. NINLARO [Concomitant]
     Active Substance: IXAZOMIB CITRATE
  9. DEXAMETHASONE. [Concomitant]
     Active Substance: DEXAMETHASONE
  10. VALTREX [Concomitant]
     Active Substance: VALACYCLOVIR HYDROCHLORIDE
  11. MISOPROSTOL. [Concomitant]
     Active Substance: MISOPROSTOL
  12. FUROSEMIDE. [Concomitant]
     Active Substance: FUROSEMIDE
  13. FERROUS SULFATE IRON [Concomitant]
  14. FOLIC ACID. [Concomitant]
     Active Substance: FOLIC ACID
  15. METOPROLOL TARTRATE. [Concomitant]
     Active Substance: METOPROLOL TARTRATE
  16. VITAMIN B12 [Concomitant]
     Active Substance: CYANOCOBALAMIN
  17. MELATONIN [Concomitant]
     Active Substance: MELATONIN
  18. PROCHLORPERAZINE MALEATE. [Concomitant]
     Active Substance: PROCHLORPERAZINE MALEATE

REACTIONS (3)
  - Nausea [None]
  - Dizziness [None]
  - Diarrhoea [None]
